FAERS Safety Report 13646351 (Version 3)
Quarter: 2017Q3

REPORT INFORMATION
  Report Type: Report from Study
  Country: GB (occurrence: GB)
  Receive Date: 20170613
  Receipt Date: 20170705
  Transmission Date: 20171127
  Serious: Yes (Death, Hospitalization, Other)
  Sender: FDA-Public Use
  Company Number: GB-ROCHE-1914736

PATIENT
  Sex: Male
  Weight: 70 kg

DRUGS (18)
  1. FRUSEMIDE [Concomitant]
     Active Substance: FUROSEMIDE
  2. ATORVASTATIN [Concomitant]
     Active Substance: ATORVASTATIN
  3. FUROSEMIDE. [Concomitant]
     Active Substance: FUROSEMIDE
  4. ESBRIET [Suspect]
     Active Substance: PIRFENIDONE
     Indication: PRODUCT USED FOR UNKNOWN INDICATION
     Route: 065
     Dates: start: 20170322
  5. ESBRIET [Suspect]
     Active Substance: PIRFENIDONE
     Route: 065
     Dates: start: 20140716
  6. RANITIDINE. [Concomitant]
     Active Substance: RANITIDINE
  7. QVAR [Concomitant]
     Active Substance: BECLOMETHASONE DIPROPIONATE
     Route: 065
  8. CLOPIDOGREL [Concomitant]
     Active Substance: CLOPIDOGREL BISULFATE
  9. PANTOPRAZOLE [Concomitant]
     Active Substance: PANTOPRAZOLE
  10. ESBRIET [Suspect]
     Active Substance: PIRFENIDONE
     Route: 065
     Dates: start: 20170314
  11. ESBRIET [Suspect]
     Active Substance: PIRFENIDONE
     Route: 065
  12. DIGOXIN. [Concomitant]
     Active Substance: DIGOXIN
  13. METFORMIN [Concomitant]
     Active Substance: METFORMIN HYDROCHLORIDE
  14. FERROUS GLUCONATE [Concomitant]
     Active Substance: FERROUS GLUCONATE
  15. SAXAGLIPTIN [Concomitant]
     Active Substance: SAXAGLIPTIN
  16. ESBRIET [Suspect]
     Active Substance: PIRFENIDONE
     Dosage: 3 CAPSULES THRICE A DAY
     Route: 065
     Dates: start: 20170331
  17. OMEPRAZOLE. [Concomitant]
     Active Substance: OMEPRAZOLE
  18. GLICLAZIDE [Concomitant]
     Active Substance: GLICLAZIDE

REACTIONS (24)
  - Dyspepsia [Unknown]
  - Haemorrhage [Unknown]
  - Cough [Recovering/Resolving]
  - Dyspnoea [Not Recovered/Not Resolved]
  - Epistaxis [Unknown]
  - Nausea [Not Recovered/Not Resolved]
  - Abdominal pain upper [Not Recovered/Not Resolved]
  - Diarrhoea [Unknown]
  - Diarrhoea [Not Recovered/Not Resolved]
  - Cardiac disorder [Unknown]
  - Pulmonary fibrosis [Unknown]
  - Pulmonary arterial hypertension [Unknown]
  - Tachypnoea [Unknown]
  - Atrial flutter [Unknown]
  - Pneumothorax [Unknown]
  - Fatigue [Unknown]
  - Dry mouth [Unknown]
  - Dysgeusia [Unknown]
  - Decreased appetite [Not Recovered/Not Resolved]
  - Back injury [Unknown]
  - Death [Fatal]
  - Malaise [Unknown]
  - Anaemia [Unknown]
  - Vomiting [Unknown]

NARRATIVE: CASE EVENT DATE: 20170608
